FAERS Safety Report 8317554-5 (Version None)
Quarter: 2012Q2

REPORT INFORMATION
  Report Type: 
  Country: None (occurrence: None)
  Receive Date: 20120427
  Receipt Date: 20120423
  Transmission Date: 20120825
  Serious: Yes (Life-Threatening, Hospitalization)
  Sender: FDA-Public Use
  Company Number: PHHO2011AU15592

PATIENT
  Sex: Male
  Weight: 61.2 kg

DRUGS (7)
  1. SIMULECT [Suspect]
     Indication: RENAL TRANSPLANT
     Dosage: 20 MG, UNK
     Dates: start: 20110831
  2. PROGRAF [Suspect]
     Indication: RENAL TRANSPLANT
     Dosage: 3.5 MG, BID
     Dates: start: 20110901, end: 20110901
  3. STEROIDS NOS [Concomitant]
  4. IMMUNE GLOBULIN NOS [Concomitant]
     Dosage: UNK
     Route: 042
  5. MYFORTIC [Suspect]
     Indication: RENAL TRANSPLANT
     Dosage: 1080 MG, BID
     Dates: start: 20110831, end: 20110831
  6. MYCOPHENOLATE MOFETIL (CELLCEPT) [Suspect]
     Indication: RENAL TRANSPLANT
     Dosage: 1.5 MG, UNK
     Route: 042
     Dates: start: 20110902
  7. PROGRAF [Suspect]
     Dosage: UNK
     Dates: start: 20110903

REACTIONS (7)
  - HYPOTENSION [None]
  - CARDIAC ARREST [None]
  - DISSEMINATED INTRAVASCULAR COAGULATION [None]
  - ANASTOMOTIC HAEMORRHAGE [None]
  - RIGHT VENTRICULAR FAILURE [None]
  - PANCYTOPENIA [None]
  - TOXICITY TO VARIOUS AGENTS [None]
